FAERS Safety Report 6701792-9 (Version None)
Quarter: 2010Q2

REPORT INFORMATION
  Report Type: 
  Country: None (occurrence: None)
  Receive Date: 20100429
  Receipt Date: 20100426
  Transmission Date: 20101027
  Serious: Yes (Death)
  Sender: FDA-Public Use
  Company Number: PHHY2009JP31773

PATIENT
  Sex: Female

DRUGS (14)
  1. TASIGNA [Suspect]
     Indication: CHRONIC MYELOID LEUKAEMIA
     Dosage: 800 MG/DAY
     Route: 048
     Dates: start: 20090225, end: 20090608
  2. TASIGNA [Suspect]
     Dosage: 400 MG DAILY
     Route: 048
     Dates: start: 20090623, end: 20090914
  3. TASIGNA [Suspect]
     Dosage: 200 MG DAILY
     Dates: start: 20090915, end: 20091220
  4. ZOVIRAX [Concomitant]
     Indication: CHRONIC MYELOID LEUKAEMIA
     Dosage: 800 MG, UNK
     Route: 048
     Dates: start: 20090209, end: 20091220
  5. ZOVIRAX [Concomitant]
     Dosage: 600 MG, UNK
     Route: 048
  6. TAKEPRON [Concomitant]
     Indication: CHRONIC MYELOID LEUKAEMIA
     Dosage: 15 MG, UNK
     Route: 048
     Dates: start: 20090209, end: 20090624
  7. DIFLUCAN [Concomitant]
     Indication: CHRONIC MYELOID LEUKAEMIA
     Dosage: 200 MG, UNK
     Route: 048
     Dates: start: 20090209, end: 20091220
  8. DOGMATYL [Concomitant]
     Indication: CHRONIC MYELOID LEUKAEMIA
     Dosage: 150 MG, UNK
     Route: 048
     Dates: start: 20090207, end: 20091220
  9. MAXIPIME [Concomitant]
     Indication: CHRONIC MYELOID LEUKAEMIA
     Dosage: UNK DL, UNK
     Route: 041
     Dates: start: 20090210, end: 20090216
  10. PREDONINE [Concomitant]
     Indication: CHRONIC MYELOID LEUKAEMIA
     Dosage: 40 MG, UNK
     Route: 048
     Dates: start: 20090623, end: 20091225
  11. PREDONINE [Concomitant]
     Dosage: 30 MG, UNK
     Route: 048
     Dates: start: 20090623
  12. COTRIM [Concomitant]
     Indication: CHRONIC MYELOID LEUKAEMIA
     Dosage: 4 DF, UNK
     Route: 048
     Dates: start: 20090623, end: 20091220
  13. NEOMALLERMIN TR [Concomitant]
     Indication: CHRONIC MYELOID LEUKAEMIA
     Dosage: 6 MG, UNK
     Route: 048
     Dates: start: 20090527, end: 20091220
  14. FOSCAVIR [Concomitant]
     Indication: CHRONIC MYELOID LEUKAEMIA
     Dosage: 7.2 G, UNK
     Route: 042
     Dates: start: 20090623, end: 20090630

REACTIONS (6)
  - CONCOMITANT DISEASE AGGRAVATED [None]
  - ELECTROCARDIOGRAM QT PROLONGED [None]
  - GRAFT VERSUS HOST DISEASE [None]
  - HYPERLIPIDAEMIA [None]
  - LUNG DISORDER [None]
  - RESPIRATORY FAILURE [None]
